FAERS Safety Report 10769512 (Version 1)
Quarter: 2015Q1

REPORT INFORMATION
  Report Type: Spontaneous
  Country: US (occurrence: US)
  Receive Date: 20150206
  Receipt Date: 20150206
  Transmission Date: 20150721
  Serious: No
  Sender: FDA-Public Use
  Company Number: US-009507513-1502USA000510

PATIENT
  Sex: Female

DRUGS (1)
  1. DULERA [Suspect]
     Active Substance: FORMOTEROL FUMARATE DIHYDRATE\MOMETASONE FUROATE
     Dosage: 200/5MCG / 2 PUFFS EVERY 12 HOURS
     Route: 055
     Dates: start: 201407

REACTIONS (3)
  - No adverse event [Unknown]
  - Product cleaning inadequate [Unknown]
  - Incorrect dose administered [Unknown]
